FAERS Safety Report 8570600-6 (Version None)
Quarter: 2012Q3

REPORT INFORMATION
  Report Type: 
  Country: None (occurrence: None)
  Receive Date: 20120804
  Receipt Date: 20120723
  Transmission Date: 20120928
  Serious: No
  Sender: FDA-Public Use
  Company Number: US-009507513-1207USA009815

PATIENT

DRUGS (1)
  1. ZOCOR [Suspect]
     Dosage: 10 MG, UNK
     Route: 048

REACTIONS (3)
  - PAIN IN EXTREMITY [None]
  - MUSCULAR WEAKNESS [None]
  - MOBILITY DECREASED [None]
